FAERS Safety Report 19417941 (Version 1)
Quarter: 2021Q2

REPORT INFORMATION
  Report Type: Spontaneous
  Country: NL (occurrence: NL)
  Receive Date: 20210615
  Receipt Date: 20210615
  Transmission Date: 20210717
  Serious: Yes (Disabling)
  Sender: FDA-Public Use
  Company Number: NL-ACCORD-227680

PATIENT
  Age: 80 Year
  Sex: Female

DRUGS (11)
  1. DIETHANOLAMINE FUSIDATE/FUSIDATE SODIUM/FUSIDIC ACID [Concomitant]
     Active Substance: DIETHANOLAMINE FUSIDATE\FUSIDATE SODIUM\FUSIDIC ACID
  2. ATORVASTATIN [Concomitant]
     Active Substance: ATORVASTATIN
  3. PREDNISOLONE. [Concomitant]
     Active Substance: PREDNISOLONE
  4. METHOTREXATE. [Suspect]
     Active Substance: METHOTREXATE
     Indication: RHEUMATOID ARTHRITIS
     Dates: start: 2021, end: 20210210
  5. DIPYRIDAMOLE. [Concomitant]
     Active Substance: DIPYRIDAMOLE
  6. OMEPRAZOLE. [Concomitant]
     Active Substance: OMEPRAZOLE
  7. ACETYLSALICYLIC ACID [Concomitant]
     Active Substance: ASPIRIN
  8. CICLOPIROX. [Concomitant]
     Active Substance: CICLOPIROX
  9. HYDROXYCHLOROQUINE [Concomitant]
     Active Substance: HYDROXYCHLOROQUINE
  10. COLECALCIFEROL [Concomitant]
     Active Substance: CHOLECALCIFEROL
  11. IRBESARTAN. [Concomitant]
     Active Substance: IRBESARTAN

REACTIONS (2)
  - Spinal cord haemorrhage [Not Recovered/Not Resolved]
  - Paralysis [Not Recovered/Not Resolved]

NARRATIVE: CASE EVENT DATE: 20210209
